FAERS Safety Report 25853755 (Version 1)
Quarter: 2025Q3

REPORT INFORMATION
  Report Type: Spontaneous
  Country: US (occurrence: US)
  Receive Date: 20250926
  Receipt Date: 20250926
  Transmission Date: 20251021
  Serious: No
  Sender: EMD SERONO INC
  Company Number: US-Merck Healthcare KGaA-2025048659

PATIENT
  Age: 74 Year
  Sex: Male

DRUGS (1)
  1. MAVENCLAD [Suspect]
     Active Substance: CLADRIBINE
     Indication: Multiple sclerosis

REACTIONS (7)
  - Ingrowing nail [Unknown]
  - Fall [Unknown]
  - Skin laceration [Unknown]
  - Depressed mood [Unknown]
  - Paraesthesia [Unknown]
  - Hypoaesthesia [Unknown]
  - Condition aggravated [Unknown]
